FAERS Safety Report 6620451-4 (Version None)
Quarter: 2010Q1

REPORT INFORMATION
  Report Type: 
  Country: None (occurrence: None)
  Receive Date: 20100308
  Receipt Date: 20100308
  Transmission Date: 20100710
  Serious: No
  Sender: FDA-Public Use
  Company Number: None

PATIENT
  Age: 71 Year
  Sex: Female
  Weight: 68.0396 kg

DRUGS (2)
  1. ANEXSIA [Suspect]
     Indication: PAIN
     Dosage: ONE TABLET  4-6 HOURS
     Dates: start: 20100128, end: 20100203
  2. ANEXSIA [Suspect]
     Indication: UPPER LIMB FRACTURE
     Dosage: ONE TABLET  4-6 HOURS
     Dates: start: 20100128, end: 20100203

REACTIONS (3)
  - JOINT SWELLING [None]
  - OEDEMA PERIPHERAL [None]
  - PAIN IN EXTREMITY [None]
